FAERS Safety Report 18925529 (Version 2)
Quarter: 2021Q1

REPORT INFORMATION
  Report Type: Spontaneous
  Country: US (occurrence: US)
  Receive Date: 20210222
  Receipt Date: 20210324
  Transmission Date: 20210420
  Serious: No
  Sender: FDA-Public Use
  Company Number: US-KALEO, INC.-2021KL000007

PATIENT
  Sex: Female

DRUGS (1)
  1. AUVI?Q [Suspect]
     Active Substance: EPINEPHRINE

REACTIONS (3)
  - Device safety feature issue [Unknown]
  - Device loosening [Unknown]
  - Device occlusion [Unknown]
